FAERS Safety Report 4364097-X (Version None)
Quarter: 2004Q2

REPORT INFORMATION
  Report Type: 
  Country: None (occurrence: None)
  Receive Date: 20040519
  Receipt Date: 20040507
  Transmission Date: 20050107
  Serious: Yes (Hospitalization)
  Sender: FDA-Public Use
  Company Number: 2004-BP-03625BP

PATIENT
  Age: 60 Year
  Sex: Female

DRUGS (2)
  1. ATROVENT [Suspect]
     Indication: CHRONIC OBSTRUCTIVE AIRWAYS DISEASE
     Dosage: 144 MCG (18 MCG, 8 PUFFS DAILY) IH
     Route: 055
     Dates: start: 19940101
  2. ADVAIR (SERETIDE MITE) [Concomitant]

REACTIONS (7)
  - ANEURYSM [None]
  - ANXIETY [None]
  - DRUG INEFFECTIVE [None]
  - DYSGEUSIA [None]
  - DYSPNOEA [None]
  - FUNGAL INFECTION [None]
  - PHARMACEUTICAL PRODUCT COMPLAINT [None]
